FAERS Safety Report 5744336-0 (Version None)
Quarter: 2008Q2

REPORT INFORMATION
  Report Type: 
  Country: None (occurrence: None)
  Receive Date: 20080520
  Receipt Date: 20080508
  Transmission Date: 20081010
  Serious: Yes (Hospitalization)
  Sender: FDA-Public Use
  Company Number: US-ELI_LILLY_AND_COMPANY-US200805001617

PATIENT
  Sex: Female

DRUGS (3)
  1. FORTEO [Suspect]
     Indication: OSTEOPOROSIS
     Dates: start: 20070701
  2. FORTEO [Suspect]
  3. FORTEO [Suspect]

REACTIONS (6)
  - CATARACT OPERATION [None]
  - DYSPNOEA [None]
  - NERVE COMPRESSION [None]
  - PAIN [None]
  - SPINAL FRACTURE [None]
  - VISUAL DISTURBANCE [None]
